FAERS Safety Report 8469376-2 (Version None)
Quarter: 2012Q2

REPORT INFORMATION
  Report Type: 
  Country: None (occurrence: None)
  Receive Date: 20120626
  Receipt Date: 20120620
  Transmission Date: 20120825
  Serious: Yes (Death)
  Sender: FDA-Public Use
  Company Number: US-CELGENEUS-163-21880-12063354

PATIENT
  Sex: Female
  Weight: 65.104 kg

DRUGS (22)
  1. VITAMIN B COMPLEX CAP [Concomitant]
     Route: 048
  2. HUMULIN R [Concomitant]
     Dosage: 100 MILLILITER
     Route: 065
  3. HYDROMORPHONE HCL [Concomitant]
     Indication: PAIN
     Dosage: 4 MILLIGRAM
     Route: 048
  4. REVLIMID [Suspect]
     Dosage: 10 MILLIGRAM
     Route: 048
     Dates: start: 20110401
  5. ALBUTEROL SULFATE [Concomitant]
     Dosage: .63 MILLIGRAM
  6. DEXAMETHASONE [Concomitant]
     Dosage: 4 MILLIGRAM
     Route: 048
  7. FAMOTIDINE [Concomitant]
     Dosage: 20 MILLIGRAM
     Route: 048
  8. FENTANYL [Concomitant]
     Dosage: 12 MICROGRAM
     Route: 062
  9. ASCORBIC ACID [Concomitant]
     Dosage: 1 PACKETS
     Route: 048
  10. FUROSEMIDE [Concomitant]
     Dosage: 20 MILLIGRAM
     Route: 048
  11. ZEMPLAR [Concomitant]
     Dosage: 1 PACKETS
     Route: 041
  12. ONDANSETRON HCL [Concomitant]
     Indication: VOMITING
  13. EPOGEN [Concomitant]
     Dosage: 8000 UNITS
     Route: 065
  14. LANTUS [Concomitant]
     Dosage: 100/ML; 20 UNITS
     Route: 065
  15. ONDANSETRON HCL [Concomitant]
     Indication: NAUSEA
     Dosage: 8 MILLIGRAM
     Route: 048
  16. CELEXA [Concomitant]
     Dosage: 10 MILLIGRAM
     Route: 048
  17. FOLIC ACID [Concomitant]
     Dosage: 1 MILLIGRAM
     Route: 048
  18. MIDODRINE HYDROCHLORIDE [Concomitant]
     Dosage: 10 MILLIGRAM
     Route: 048
  19. REVLIMID [Suspect]
     Indication: MULTIPLE MYELOMA
     Dosage: 5 MILLIGRAM
     Route: 048
     Dates: start: 20101118
  20. FERROUS SULFATE TAB [Concomitant]
     Dosage: 325(65)MG
     Route: 048
  21. NEPRO [Concomitant]
     Dosage: 0.06G-1.80
     Route: 048
  22. PRILOSEC [Concomitant]
     Dosage: 20 MILLIGRAM
     Route: 048

REACTIONS (1)
  - MULTIPLE MYELOMA [None]
